FAERS Safety Report 25386313 (Version 1)
Quarter: 2025Q2

REPORT INFORMATION
  Report Type: Spontaneous
  Country: GB (occurrence: None)
  Receive Date: 20250602
  Receipt Date: 20250602
  Transmission Date: 20250717
  Serious: Yes (Disabling, Other)
  Sender: FDA-CTU
  Company Number: None

PATIENT

DRUGS (2)
  1. EFFEXOR [Suspect]
     Active Substance: VENLAFAXINE HYDROCHLORIDE
     Indication: Depression
     Dosage: OTHER QUANTITY : 1 TABLET(S);?FREQUENCY : TWICE A DAY;?
     Route: 048
     Dates: start: 20221108, end: 20241202
  2. PROZAC [Suspect]
     Active Substance: FLUOXETINE HYDROCHLORIDE

REACTIONS (4)
  - Visual impairment [None]
  - Headache [None]
  - Suicidal ideation [None]
  - Sexual dysfunction [None]

NARRATIVE: CASE EVENT DATE: 20241202
